FAERS Safety Report 26203046 (Version 1)
Quarter: 2025Q4

REPORT INFORMATION
  Report Type: Spontaneous
  Country: GB (occurrence: GB)
  Receive Date: 20251226
  Receipt Date: 20251226
  Transmission Date: 20260117
  Serious: Yes (Other)
  Sender: TORRENT PHARMA INC.
  Company Number: None

PATIENT
  Age: 67 Year
  Sex: Female

DRUGS (1)
  1. ROSUVASTATIN [Suspect]
     Active Substance: ROSUVASTATIN
     Indication: Cerebrovascular accident
     Dosage: UNKNOWN
     Route: 065

REACTIONS (4)
  - Myalgia [Unknown]
  - Intervertebral disc protrusion [Unknown]
  - Musculoskeletal discomfort [Unknown]
  - Muscle strain [Unknown]
